FAERS Safety Report 12444893 (Version 5)
Quarter: 2020Q2

REPORT INFORMATION
  Report Type: Spontaneous
  Country: US (occurrence: US)
  Receive Date: 20160607
  Receipt Date: 20200423
  Transmission Date: 20200713
  Serious: No
  Sender: FDA-Public Use
  Company Number: US-PFIZER INC-2016273539

PATIENT
  Age: 86 Year
  Sex: Female

DRUGS (5)
  1. DEMEROL [Suspect]
     Active Substance: MEPERIDINE HYDROCHLORIDE
     Dosage: 2 DF, UNK (6 NIGHTS OF DAY)
  2. DEMEROL [Suspect]
     Active Substance: MEPERIDINE HYDROCHLORIDE
     Indication: DIABETIC NEUROPATHY
     Dosage: UNK, UNK (50, THEN TO 100 AND THEN TO 100 TWICE A NIGHT)
  3. DEMEROL [Suspect]
     Active Substance: MEPERIDINE HYDROCHLORIDE
     Indication: PAIN
     Dosage: UNK, UNK (50, THEN TO 100 AND THEN TO 100 TWICE A NIGHT)
  4. DEMEROL [Suspect]
     Active Substance: MEPERIDINE HYDROCHLORIDE
     Dosage: UNK, 2X/DAY (50, THEN TO 100 AND THEN TO 100 TWICE A NIGHT)
  5. DEMEROL [Suspect]
     Active Substance: MEPERIDINE HYDROCHLORIDE
     Dosage: 200 MG, 1X/DAY

REACTIONS (1)
  - Insomnia [Recovered/Resolved]
